FAERS Safety Report 21940193 (Version 1)
Quarter: 2023Q1

REPORT INFORMATION
  Report Type: Report from Study
  Country: US (occurrence: US)
  Receive Date: 20230201
  Receipt Date: 20230201
  Transmission Date: 20230418
  Serious: No
  Sender: FDA-Public Use
  Company Number: US-EXELIXIS-CABO-22049686

PATIENT
  Sex: Male

DRUGS (16)
  1. CABOMETYX [Suspect]
     Active Substance: CABOZANTINIB S-MALATE
     Indication: Renal cancer
     Dosage: 40 MG, QD
     Route: 048
     Dates: start: 20211020, end: 202202
  2. CABOMETYX [Suspect]
     Active Substance: CABOZANTINIB S-MALATE
     Dosage: 40 MG, QD
     Route: 048
  3. CABOMETYX [Suspect]
     Active Substance: CABOZANTINIB S-MALATE
     Dosage: 40 MG, QD
     Route: 048
  4. FOLIC ACID [Concomitant]
     Active Substance: FOLIC ACID
  5. LISINOPRIL [Concomitant]
     Active Substance: LISINOPRIL
  6. SIMVASTATIN [Concomitant]
     Active Substance: SIMVASTATIN
  7. METFORMIN [Concomitant]
     Active Substance: METFORMIN HYDROCHLORIDE
  8. GLIPIZIDE [Concomitant]
     Active Substance: GLIPIZIDE
  9. TRULICITY [Concomitant]
     Active Substance: DULAGLUTIDE
  10. FLUDROCORTISONA [Concomitant]
  11. NIFEDIPINE [Concomitant]
     Active Substance: NIFEDIPINE
  12. DAKINS FULL [Concomitant]
     Active Substance: SODIUM HYPOCHLORITE
  13. PIOGLITAZONE [Concomitant]
     Active Substance: PIOGLITAZONE
  14. PANTOPRAZOLE [Concomitant]
     Active Substance: PANTOPRAZOLE
  15. CARVEDILOL [Concomitant]
     Active Substance: CARVEDILOL
  16. Lantus Solos [Concomitant]

REACTIONS (3)
  - Staphylococcal infection [Unknown]
  - Rash [Unknown]
  - Product dose omission issue [Unknown]
